FAERS Safety Report 4669360-0 (Version None)
Quarter: 2005Q2

REPORT INFORMATION
  Report Type: 
  Country: None (occurrence: None)
  Receive Date: 20050519
  Receipt Date: 20050512
  Transmission Date: 20051028
  Serious: Yes (Other)
  Sender: FDA-Public Use
  Company Number: GBWYE608422APR05

PATIENT
  Age: 59 Year
  Sex: Female

DRUGS (7)
  1. PREMIQUE (CONUGATED ESTROGENS/MEDROXYPROGESTERONE ACETATE, TABLET) [Suspect]
  2. PREMIQUE (CONUGATED ESTROGENS/MEDROXYPROGESTERONE ACETATE, TABLET) [Suspect]
     Dates: start: 20050301
  3. NIFEDIPINE [Concomitant]
  4. DOXAZOSIN (DOXAZOSIN) [Concomitant]
  5. IBUPROFEN [Concomitant]
  6. ATENOLOL [Concomitant]
  7. ATORVASTATIN CALCIUM [Concomitant]

REACTIONS (1)
  - GRANULOMATOUS LIVER DISEASE [None]
